FAERS Safety Report 20236985 (Version 1)
Quarter: 2021Q4

REPORT INFORMATION
  Report Type: Spontaneous
  Country: US (occurrence: US)
  Receive Date: 20211228
  Receipt Date: 20211228
  Transmission Date: 20220303
  Serious: Yes (Other)
  Sender: FDA-Public Use
  Company Number: US-MACLEODS PHARMA UK LTD-MAC2021033860

PATIENT

DRUGS (2)
  1. ARIPIPRAZOLE [Suspect]
     Active Substance: ARIPIPRAZOLE
     Indication: Product used for unknown indication
     Dosage: UNK
     Route: 048
  2. QUETIAPINE [Suspect]
     Active Substance: QUETIAPINE
     Indication: Mental disorder
     Dosage: UNK
     Route: 048

REACTIONS (25)
  - Drug dependence [Unknown]
  - Aphthous ulcer [Unknown]
  - Lymphadenopathy [Unknown]
  - Extrasystoles [Unknown]
  - Tongue biting [Unknown]
  - Chills [Unknown]
  - Heart rate irregular [Unknown]
  - Oropharyngeal pain [Unknown]
  - Drug hypersensitivity [Unknown]
  - Abdominal pain [Unknown]
  - Dry mouth [Unknown]
  - Dysphagia [Unknown]
  - Pyrexia [Unknown]
  - Chest pain [Unknown]
  - Nausea [Unknown]
  - Myalgia [Unknown]
  - Diarrhoea [Unknown]
  - Insomnia [Unknown]
  - Asthenia [Unknown]
  - Fatigue [Unknown]
  - Dyspnoea [Unknown]
  - Headache [Unknown]
  - Somnolence [Unknown]
  - Tremor [Unknown]
  - Vision blurred [Unknown]
